FAERS Safety Report 9058747 (Version 1)
Quarter: 2013Q1

REPORT INFORMATION
  Report Type: Spontaneous
  Country: US (occurrence: US)
  Receive Date: 20130204
  Receipt Date: 20130204
  Transmission Date: 20140127
  Serious: Yes (Hospitalization)
  Sender: FDA-Public Use
  Company Number: US-ASTRAZENECA-2013SE07021

PATIENT
  Age: 54 Year
  Sex: Female
  Weight: 117.9 kg

DRUGS (11)
  1. NEXIUM [Suspect]
     Indication: GASTROOESOPHAGEAL REFLUX DISEASE
     Route: 048
     Dates: start: 2010
  2. NEXIUM [Suspect]
     Indication: GASTROOESOPHAGEAL REFLUX DISEASE
     Route: 048
     Dates: start: 2010
  3. MONTELUKAST SODIUM [Concomitant]
     Indication: WHEEZING
     Dates: start: 201301
  4. NITROSTATIN [Concomitant]
     Indication: CHEST PAIN
     Dates: start: 2012
  5. HYDROCHLORTHIAZIDE [Concomitant]
     Indication: BLOOD PRESSURE ABNORMAL
     Dates: start: 2005
  6. AMLIDOPINE [Concomitant]
     Indication: BLOOD PRESSURE ABNORMAL
     Dates: start: 2012
  7. ASPIRIN [Concomitant]
     Indication: ANTICOAGULANT THERAPY
     Dosage: DAILY
  8. CLONOPIN [Concomitant]
     Indication: BIPOLAR DISORDER
     Dates: start: 2008
  9. CLONOPIN [Concomitant]
     Indication: ANXIETY
     Dates: start: 2008
  10. WELLBUTRIN [Concomitant]
     Dates: start: 2008
  11. DOXAPIN [Concomitant]
     Indication: SLEEP DISORDER

REACTIONS (7)
  - Tonsillar hypertrophy [Unknown]
  - Gastric disorder [Unknown]
  - Nasopharyngitis [Unknown]
  - Dyspepsia [Unknown]
  - Chest pain [Unknown]
  - Wheezing [Unknown]
  - Intentional drug misuse [Unknown]
